FAERS Safety Report 8134375-7 (Version None)
Quarter: 2012Q1

REPORT INFORMATION
  Report Type: 
  Country: None (occurrence: None)
  Receive Date: 20120103
  Receipt Date: 20111109
  Transmission Date: 20120608
  Serious: No
  Sender: FDA-Public Use
  Company Number: AE-2011-003250

PATIENT
  Age: 48 Year
  Sex: Female
  Weight: 82.5547 kg

DRUGS (3)
  1. INCIVEK [Suspect]
     Dosage: 6 DOSAGE FORMS (2 DOSAGE FORMS, 3 IN 1 D), ORAL
     Route: 048
     Dates: start: 20111001, end: 20111022
  2. PEGASYS [Concomitant]
  3. RIBAVIRIN [Concomitant]

REACTIONS (5)
  - CHEST PAIN [None]
  - ANAEMIA [None]
  - VOMITING [None]
  - PRURITUS [None]
  - NAUSEA [None]
